FAERS Safety Report 17172472 (Version 1)
Quarter: 2019Q4

REPORT INFORMATION
  Report Type: Spontaneous
  Country: FR (occurrence: FR)
  Receive Date: 20191219
  Receipt Date: 20191219
  Transmission Date: 20200122
  Serious: Yes (Hospitalization)
  Sender: FDA-Public Use
  Company Number: FR-MYLANLABS-2019M1124373

PATIENT
  Age: 74 Year
  Sex: Male
  Weight: 135 kg

DRUGS (4)
  1. TRUXIMA [Suspect]
     Active Substance: RITUXIMAB-ABBS
     Indication: NON-HODGKIN^S LYMPHOMA
     Dosage: 375 MILLIGRAM/SQ. METER, Q3W
     Route: 041
     Dates: start: 20181217, end: 20190514
  2. CYTARABINE EBEWE [Suspect]
     Active Substance: CYTARABINE
     Indication: NON-HODGKIN^S LYMPHOMA
     Dosage: 4 GRAM (1 G/20 ML)
     Route: 041
     Dates: start: 20181217, end: 20190514
  3. CARBOPLATIN. [Suspect]
     Active Substance: CARBOPLATIN
     Indication: NON-HODGKIN^S LYMPHOMA
     Dosage: 720 MILLIGRAM, Q3W
     Route: 041
     Dates: start: 20181217, end: 20190514
  4. DEXAMETHASONE. [Suspect]
     Active Substance: DEXAMETHASONE
     Indication: NON-HODGKIN^S LYMPHOMA
     Dosage: 160 MILLIGRAM, Q3W
     Route: 048
     Dates: start: 20181217, end: 20190514

REACTIONS (1)
  - Febrile bone marrow aplasia [Recovered/Resolved]

NARRATIVE: CASE EVENT DATE: 20190526
